FAERS Safety Report 10151028 (Version 2)
Quarter: 2014Q2

REPORT INFORMATION
  Report Type: Spontaneous
  Country: US (occurrence: US)
  Receive Date: 20140502
  Receipt Date: 20140530
  Transmission Date: 20141212
  Serious: No
  Sender: FDA-Public Use
  Company Number: US-PFIZER INC-2014118854

PATIENT
  Age: 54 Year
  Sex: Female
  Weight: 67.12 kg

DRUGS (2)
  1. FLECTOR [Suspect]
     Indication: BACK PAIN
     Dosage: UNK, SINGLE
     Dates: start: 20140411, end: 20140411
  2. IBUPROFEN [Concomitant]
     Indication: BACK PAIN
     Dosage: 800 MG, 3X/DAY

REACTIONS (1)
  - Drug ineffective [Unknown]
